FAERS Safety Report 12691431 (Version 1)
Quarter: 2016Q3

REPORT INFORMATION
  Report Type: Spontaneous
  Country: US (occurrence: US)
  Receive Date: 20160826
  Receipt Date: 20160826
  Transmission Date: 20161109
  Serious: No
  Sender: FDA-Public Use
  Company Number: US-EMD SERONO-8102863

PATIENT

DRUGS (1)
  1. GONAL-F [Suspect]
     Active Substance: FOLLITROPIN
     Indication: PRODUCT USED FOR UNKNOWN INDICATION

REACTIONS (4)
  - Anti-Muellerian hormone level decreased [Not Recovered/Not Resolved]
  - Oestradiol decreased [Unknown]
  - Drug effect decreased [Unknown]
  - Antral follicle count low [Unknown]
